FAERS Safety Report 5964301-8 (Version None)
Quarter: 2008Q4

REPORT INFORMATION
  Report Type: 
  Country: None (occurrence: None)
  Receive Date: 20081124
  Receipt Date: 20081113
  Transmission Date: 20090506
  Serious: Yes (Other)
  Sender: FDA-Public Use
  Company Number: US-PFIZER INC-2005050997

PATIENT
  Sex: Female
  Weight: 81.6 kg

DRUGS (11)
  1. DETROL LA [Suspect]
     Indication: URINARY INCONTINENCE
     Route: 048
  2. DARIFENACIN [Suspect]
  3. PREMARIN [Concomitant]
     Route: 048
  4. ACETYLSALICYLIC ACID SRT [Concomitant]
     Route: 048
  5. DIOVAN HCT [Concomitant]
     Route: 048
  6. SYNTHROID [Concomitant]
     Route: 048
  7. GLUCOSAMINE SULFATE [Concomitant]
     Route: 048
  8. GINKGO BILOBA [Concomitant]
     Route: 048
  9. CENTRUM SILVER [Concomitant]
     Route: 048
  10. CALTRATE + D [Concomitant]
     Route: 048
  11. VITAMIN E [Concomitant]
     Route: 048

REACTIONS (3)
  - BLADDER OPERATION [None]
  - DRUG INEFFECTIVE [None]
  - GASTRIC POLYPS [None]
